FAERS Safety Report 9667842 (Version 2)
Quarter: 2014Q2

REPORT INFORMATION
  Report Type: Spontaneous
  Country: US (occurrence: None)
  Receive Date: 20131101
  Receipt Date: 20140501
  Transmission Date: 20141212
  Serious: Yes (Other)
  Sender: FDA-Public Use
  Company Number: 2013-US-002225

PATIENT
  Age: 14 Year
  Sex: Female

DRUGS (5)
  1. XYREM [Suspect]
     Indication: NARCOLEPSY
     Route: 048
     Dates: start: 200902, end: 200903
  2. XYREM [Suspect]
     Indication: CATAPLEXY
     Route: 048
     Dates: start: 200902, end: 200903
  3. PROTRIPTYLINE (PROTRIPTYLINE) [Concomitant]
  4. SCOPOLAMINE (SCOPOLAMINE) [Concomitant]
  5. DRAMINAL (DIMENHYDRINATE) [Concomitant]

REACTIONS (2)
  - Off label use [None]
  - Hodgkin^s disease nodular sclerosis stage IV [None]
